FAERS Safety Report 11069073 (Version 2)
Quarter: 2015Q2

REPORT INFORMATION
  Report Type: Spontaneous
  Country: CN (occurrence: CN)
  Receive Date: 20150427
  Receipt Date: 20150427
  Transmission Date: 20150821
  Serious: Yes (Death, Other)
  Sender: FDA-Public Use
  Company Number: PHHY2015CN046501

PATIENT
  Age: 40 Month
  Sex: Male

DRUGS (3)
  1. RITUXIMAB [Suspect]
     Active Substance: RITUXIMAB
     Indication: AUTOIMMUNE HAEMOLYTIC ANAEMIA
     Route: 065
  2. CICLOSPORIN [Suspect]
     Active Substance: CYCLOSPORINE
     Indication: AUTOIMMUNE HAEMOLYTIC ANAEMIA
     Route: 065
  3. CICLOSPORIN [Suspect]
     Active Substance: CYCLOSPORINE
     Indication: IMMUNOSUPPRESSION

REACTIONS (5)
  - Disease recurrence [Unknown]
  - Acute respiratory distress syndrome [Fatal]
  - Autoimmune haemolytic anaemia [Unknown]
  - Therapeutic response decreased [Unknown]
  - Cardiopulmonary failure [Fatal]
